FAERS Safety Report 8045606-6 (Version None)
Quarter: 2012Q1

REPORT INFORMATION
  Report Type: 
  Country: None (occurrence: None)
  Receive Date: 20120113
  Receipt Date: 20120106
  Transmission Date: 20120608
  Serious: Yes (Life-Threatening, Hospitalization, Other)
  Sender: FDA-Public Use
  Company Number: JP-MERCK-1109USA03370

PATIENT
  Age: 74 Year
  Sex: Female
  Weight: 51 kg

DRUGS (10)
  1. ALLOPURINOL [Concomitant]
     Indication: HYPERURICAEMIA
     Route: 048
  2. ASPIRIN [Concomitant]
     Indication: MYOCARDIAL INFARCTION
     Route: 048
  3. OLMESARTAN MEDOXOMIL [Concomitant]
     Indication: MYOCARDIAL INFARCTION
     Route: 048
     Dates: end: 20110924
  4. FAMOSTAGINE D [Concomitant]
     Indication: GASTRITIS PROPHYLAXIS
     Route: 048
  5. ZETIA [Suspect]
     Indication: DYSLIPIDAEMIA
     Route: 048
     Dates: start: 20100209, end: 20110904
  6. CARVEDILOL [Concomitant]
     Indication: MYOCARDIAL INFARCTION
     Route: 048
  7. ZETIA [Suspect]
     Indication: HYPERCHOLESTEROLAEMIA
     Route: 048
     Dates: start: 20100209, end: 20110904
  8. LASIX [Concomitant]
     Indication: MYOCARDIAL INFARCTION
     Route: 048
  9. ALDACTONE [Concomitant]
     Indication: MYOCARDIAL INFARCTION
     Route: 048
  10. WARFARIN POTASSIUM [Concomitant]
     Indication: ATRIAL FIBRILLATION
     Route: 048

REACTIONS (4)
  - DEHYDRATION [None]
  - HYPOPROTEINAEMIA [None]
  - CARDIAC FAILURE [None]
  - CIRCULATORY COLLAPSE [None]
